FAERS Safety Report 7720638-3 (Version None)
Quarter: 2011Q3

REPORT INFORMATION
  Report Type: 
  Country: None (occurrence: None)
  Receive Date: 20110831
  Receipt Date: 20110820
  Transmission Date: 20111222
  Serious: Yes (Hospitalization)
  Sender: FDA-Public Use
  Company Number: PHHY2010US55872

PATIENT
  Sex: Male

DRUGS (2)
  1. EXJADE [Suspect]
     Indication: PLASMA PROTEIN METABOLISM DISORDER
     Dosage: 1500 MG, QD
     Route: 048
  2. EXJADE [Suspect]
     Dosage: 1500 MG, BID
     Route: 048

REACTIONS (2)
  - CHROMATURIA [None]
  - MYOCARDIAL INFARCTION [None]
